FAERS Safety Report 4357851-1 (Version None)
Quarter: 2004Q2

REPORT INFORMATION
  Report Type: 
  Country: None (occurrence: None)
  Receive Date: 20040510
  Receipt Date: 20040318
  Transmission Date: 20050107
  Serious: Yes (Life-Threatening, Hospitalization)
  Sender: FDA-Public Use
  Company Number: M04-341-058

PATIENT
  Age: 17 Year
  Sex: Female
  Weight: 68 kg

DRUGS (20)
  1. VELCADE [Suspect]
     Indication: HODGKIN'S DISEASE
     Dosage: 2.3 MG: INTRAVENOUS BOLUS
     Route: 040
     Dates: start: 20040220, end: 20040227
  2. ALL OTHER THERAPEUTIC PRODUCTS [Concomitant]
  3. AMBIEN [Concomitant]
  4. ARANESP [Concomitant]
  5. BACTRIM DS [Concomitant]
  6. CELEXA (CITALOPRAM HYDROBROMIDE) ; ROUTE: ORAL [Concomitant]
  7. DIGOXIN [Concomitant]
  8. DILAUDID [Concomitant]
  9. ETOPOSIDE [Concomitant]
  10. GRANULOCYTE COLONY STIMULATING FACTOR [Concomitant]
  11. HALDOL ^JANSSEN-CILAG ^(HALOPERIDOL) [Concomitant]
  12. KYTRIL [Concomitant]
  13. LEVOSALBUTAMOL [Concomitant]
  14. NEUMEGA [Concomitant]
  15. OXYGEN [Concomitant]
  16. PEPCID [Concomitant]
  17. PREVACID [Concomitant]
  18. SCOPOLAMINE (HYOSDCINE); [Concomitant]
  19. VIOXX [Concomitant]
  20. VORICONAZOLE [Concomitant]

REACTIONS (11)
  - ALANINE AMINOTRANSFERASE INCREASED [None]
  - ASPARTATE AMINOTRANSFERASE INCREASED [None]
  - BLOOD ALKALINE PHOSPHATASE INCREASED [None]
  - BLOOD CREATININE INCREASED [None]
  - COMA [None]
  - LIVER FUNCTION TEST ABNORMAL [None]
  - PLATELET COUNT DECREASED [None]
  - PULSE ABSENT [None]
  - PUPIL FIXED [None]
  - SOMNOLENCE [None]
  - WHITE BLOOD CELL COUNT INCREASED [None]
